FAERS Safety Report 6135412-1 (Version None)
Quarter: 2009Q1

REPORT INFORMATION
  Report Type: 
  Country: None (occurrence: None)
  Receive Date: 20090327
  Receipt Date: 20090317
  Transmission Date: 20090719
  Serious: Yes (Other)
  Sender: FDA-Public Use
  Company Number: GB-PFIZER INC-2009186640

PATIENT

DRUGS (4)
  1. CHAMPIX [Suspect]
     Indication: SMOKING CESSATION THERAPY
     Dosage: 500 MG, UNK
     Route: 048
     Dates: start: 20090206, end: 20090213
  2. AMOXICILLIN [Concomitant]
     Dosage: UNK
     Route: 048
     Dates: start: 20071126
  3. PENICILLIN V ^ALIUD PHARMA^ [Concomitant]
     Dosage: UNK
     Route: 048
     Dates: start: 20071210
  4. PROCTOFOAM HC [Concomitant]
     Dosage: 1 DF, UNK
     Route: 054
     Dates: start: 20080206

REACTIONS (3)
  - DEPRESSION [None]
  - MOOD SWINGS [None]
  - PARANOIA [None]
